FAERS Safety Report 6058644-X (Version None)
Quarter: 2009Q1

REPORT INFORMATION
  Report Type: 
  Country: None (occurrence: None)
  Receive Date: 20090130
  Receipt Date: 20090120
  Transmission Date: 20090719
  Serious: Yes (Hospitalization)
  Sender: FDA-Public Use
  Company Number: IN-PFIZER INC-2009152870

PATIENT

DRUGS (5)
  1. DETRUSITOL SR [Suspect]
     Indication: HYPERTONIC BLADDER
     Dosage: 4 MG, 1X/DAY
     Route: 048
     Dates: start: 20081223
  2. ALL OTHER THERAPEUTIC PRODUCTS [Concomitant]
     Route: 048
  3. ALL OTHER THERAPEUTIC PRODUCTS [Concomitant]
     Route: 048
  4. TENORMIN [Concomitant]
     Route: 048
  5. GLICLAZIDE/METFORMIN [Concomitant]
     Route: 048

REACTIONS (2)
  - HERNIA [None]
  - OEDEMA PERIPHERAL [None]
